FAERS Safety Report 7536322-5 (Version None)
Quarter: 2011Q2

REPORT INFORMATION
  Report Type: 
  Country: None (occurrence: None)
  Receive Date: 20110608
  Receipt Date: 20110608
  Transmission Date: 20111010
  Serious: No
  Sender: FDA-Public Use
  Company Number: None

PATIENT
  Sex: Male
  Weight: 95.3 kg

DRUGS (1)
  1. CEFTAZIDIME [Suspect]
     Indication: PNEUMONIA
     Dosage: 2 GRAMS EVERY 8 HOURS IV
     Route: 042
     Dates: start: 20110602, end: 20110606

REACTIONS (2)
  - PLATELET COUNT DECREASED [None]
  - WHITE BLOOD CELL COUNT INCREASED [None]
